FAERS Safety Report 16859683 (Version 1)
Quarter: 2019Q3

REPORT INFORMATION
  Report Type: Report from Study
  Country: US (occurrence: US)
  Receive Date: 20190927
  Receipt Date: 20190927
  Transmission Date: 20191005
  Serious: Yes (Other)
  Sender: FDA-Public Use
  Company Number: US-ROCHE-1945636

PATIENT
  Age: 87 Year
  Sex: Male
  Weight: 93.52 kg

DRUGS (1)
  1. ERIVEDGE [Suspect]
     Active Substance: VISMODEGIB
     Indication: BASAL CELL CARCINOMA
     Dosage: ONGOING : NO
     Route: 048
     Dates: start: 20170401, end: 20170530

REACTIONS (11)
  - Muscle spasms [Recovered/Resolved]
  - Weight decreased [Recovered/Resolved]
  - Decreased appetite [Unknown]
  - Nausea [Recovered/Resolved]
  - Ageusia [Recovered/Resolved]
  - Constipation [Recovered/Resolved]
  - Diarrhoea [Unknown]
  - Taste disorder [Unknown]
  - Basal cell carcinoma [Not Recovered/Not Resolved]
  - Tongue discomfort [Unknown]
  - Rectal discharge [Unknown]

NARRATIVE: CASE EVENT DATE: 201704
